FAERS Safety Report 5330049-6 (Version None)
Quarter: 2007Q2

REPORT INFORMATION
  Report Type: 
  Country: None (occurrence: None)
  Receive Date: 20070521
  Receipt Date: 20070511
  Transmission Date: 20071010
  Serious: Yes (Hospitalization)
  Sender: FDA-Public Use
  Company Number: SE-ELI_LILLY_AND_COMPANY-SE200703003932

PATIENT
  Age: 58 Year
  Sex: Male

DRUGS (4)
  1. ZYPREXA [Suspect]
     Indication: SCHIZOPHRENIA
     Dosage: 15 MG, DAILY (1/D)
     Route: 048
     Dates: start: 20050622, end: 20070111
  2. ZOLPIDEM TARTRATE [Concomitant]
     Dosage: 10 MG, UNK
     Route: 065
  3. TRYPTIZOL [Concomitant]
     Dosage: 25 MG, UNK
     Route: 065
  4. SOBRIL [Concomitant]
     Dosage: 10 MG, UNK
     Route: 065

REACTIONS (1)
  - DEEP VEIN THROMBOSIS [None]
